FAERS Safety Report 4318816-9 (Version None)
Quarter: 2004Q1

REPORT INFORMATION
  Report Type: 
  Country: None (occurrence: None)
  Receive Date: 20040315
  Receipt Date: 20040301
  Transmission Date: 20041129
  Serious: Yes (Life-Threatening)
  Sender: FDA-Public Use
  Company Number: 2004001639

PATIENT
  Age: 21 Year
  Sex: Male
  Weight: 72.5755 kg

DRUGS (2)
  1. GEODON [Suspect]
     Indication: PSYCHOTIC DISORDER
     Dosage: 10 MG, INTRAMUSCULAR
     Route: 030
  2. DIPHENHYDRAMINE HCL [Concomitant]

REACTIONS (4)
  - BRADYCARDIA [None]
  - COMA [None]
  - DRUG SCREEN POSITIVE [None]
  - ELECTROCARDIOGRAM ABNORMAL [None]
